FAERS Safety Report 5822270-5 (Version None)
Quarter: 2008Q3

REPORT INFORMATION
  Report Type: 
  Country: None (occurrence: None)
  Receive Date: 20080725
  Receipt Date: 20080722
  Transmission Date: 20090109
  Serious: Yes (Life-Threatening, Hospitalization)
  Sender: FDA-Public Use
  Company Number: US-NOVOPROD-277475

PATIENT
  Sex: Male
  Weight: 70.5 kg

DRUGS (1)
  1. NORDITROPIN NORDIFLEX [Suspect]
     Indication: HAEMODIALYSIS
     Dosage: 1.4 MG, QD
     Route: 058
     Dates: start: 20080624, end: 20080716

REACTIONS (1)
  - GASTROINTESTINAL HAEMORRHAGE [None]
